FAERS Safety Report 16535854 (Version 1)
Quarter: 2019Q3

REPORT INFORMATION
  Report Type: Spontaneous
  Country: US (occurrence: US)
  Receive Date: 20190705
  Receipt Date: 20190705
  Transmission Date: 20191004
  Serious: Yes (Hospitalization, Other)
  Sender: FDA-Public Use
  Company Number: US-LUPIN PHARMACEUTICALS INC.-2019-03263

PATIENT
  Age: 58 Year
  Sex: Male

DRUGS (2)
  1. METRONIDAZOLE. [Suspect]
     Active Substance: METRONIDAZOLE
     Indication: HEPATIC ENCEPHALOPATHY
     Dosage: 500 MILLIGRAM, BID
     Route: 048
  2. METRONIDAZOLE. [Suspect]
     Active Substance: METRONIDAZOLE
     Dosage: 750 MILLIGRAM, BID (DOSE INCREASED
     Route: 048

REACTIONS (2)
  - Toxic encephalopathy [Unknown]
  - Toxicity to various agents [Unknown]
